FAERS Safety Report 5730197-2 (Version None)
Quarter: 2008Q2

REPORT INFORMATION
  Report Type: 
  Country: None (occurrence: None)
  Receive Date: 20080505
  Receipt Date: 20080505
  Transmission Date: 20081010
  Serious: Yes (Hospitalization)
  Sender: FDA-Public Use
  Company Number: None

PATIENT
  Age: 66 Year
  Sex: Male
  Weight: 71.3 kg

DRUGS (1)
  1. CEFEPIME [Suspect]
     Indication: NEUROTOXICITY
     Dosage: 2 GM BID IV
     Route: 042
     Dates: start: 20080427, end: 20080430

REACTIONS (3)
  - CONFUSIONAL STATE [None]
  - NEUROTOXICITY [None]
  - RENAL IMPAIRMENT [None]
